APPROVED DRUG PRODUCT: DIMETHYL FUMARATE
Active Ingredient: DIMETHYL FUMARATE
Strength: 120MG
Dosage Form/Route: CAPSULE, DELAYED RELEASE;ORAL
Application: A210377 | Product #001 | TE Code: AB
Applicant: MACLEODS PHARMACEUTICALS LTD
Approved: Jun 26, 2024 | RLD: No | RS: No | Type: RX